FAERS Safety Report 7144157-0 (Version None)
Quarter: 2010Q4

REPORT INFORMATION
  Report Type: 
  Country: None (occurrence: None)
  Receive Date: 20101208
  Receipt Date: 20101202
  Transmission Date: 20110411
  Serious: Yes (Other)
  Sender: FDA-Public Use
  Company Number: US-SHIRE-SPV1-2010-02091

PATIENT
  Sex: Female

DRUGS (2)
  1. INTUNIV [Suspect]
     Indication: PRODUCT USED FOR UNKNOWN INDICATION
     Dosage: 2 MG, 1X/DAY:QD
  2. INTUNIV [Suspect]
     Dosage: 1 MG, 1X/DAY:QD

REACTIONS (1)
  - INTENTIONAL SELF-INJURY [None]
